FAERS Safety Report 19043055 (Version 1)
Quarter: 2021Q1

REPORT INFORMATION
  Report Type: Spontaneous
  Country: GB (occurrence: GB)
  Receive Date: 20210323
  Receipt Date: 20210323
  Transmission Date: 20210420
  Serious: Yes (Other)
  Sender: FDA-Public Use
  Company Number: GB-TEVA-2021-GB-1891455

PATIENT
  Age: 26 Year
  Sex: Male

DRUGS (7)
  1. RANDA INJ 50MG/100ML [Suspect]
     Active Substance: CISPLATIN
     Indication: TESTICULAR GERM CELL TUMOUR
     Dosage: DAY 1, 8 AND 15, THREE CYCLES
     Route: 065
  2. ETOPOSIDE. [Suspect]
     Active Substance: ETOPOSIDE
     Indication: TESTICULAR GERM CELL TUMOUR
     Dosage: DAY 1, 8 AND 15, THREE CYCLES
     Route: 065
  3. BLEO KYOWA [Suspect]
     Active Substance: BLEOMYCIN SULFATE
     Indication: TESTICULAR GERM CELL TUMOUR
     Dosage: DAY 1, 8 AND 15, THREE CYCLES
     Route: 065
  4. RIVAROXABAN [Suspect]
     Active Substance: RIVAROXABAN
     Indication: TESTICULAR GERM CELL TUMOUR
     Dosage: 20 MILLIGRAM DAILY;
     Route: 048
  5. DALTEPARIN [Suspect]
     Active Substance: DALTEPARIN
     Indication: TESTICULAR GERM CELL TUMOUR
     Dosage: 20000 IU (INTERNATIONAL UNIT) DAILY;
     Route: 058
  6. RANDA INJ 50MG/100ML [Suspect]
     Active Substance: CISPLATIN
     Dosage: 60 MG/M2 DAILY;
     Route: 065
  7. ETOPOSIDE. [Suspect]
     Active Substance: ETOPOSIDE
     Dosage: 300 MG/M2 DAILY;
     Route: 065

REACTIONS (2)
  - Renal atrophy [Unknown]
  - Product use in unapproved indication [Unknown]
